FAERS Safety Report 14719149 (Version 2)
Quarter: 2018Q2

REPORT INFORMATION
  Report Type: Spontaneous
  Country: ES (occurrence: ES)
  Receive Date: 20180405
  Receipt Date: 20180416
  Transmission Date: 20180711
  Serious: Yes (Life-Threatening, Hospitalization, Other)
  Sender: FDA-Public Use
  Company Number: ES-ROCHE-2097097

PATIENT
  Age: 44 Year
  Sex: Female

DRUGS (1)
  1. XOLAIR [Suspect]
     Active Substance: OMALIZUMAB
     Indication: CHRONIC SPONTANEOUS URTICARIA
     Route: 065
     Dates: start: 20171211, end: 20180205

REACTIONS (9)
  - Glomerulonephritis [Unknown]
  - Back pain [Unknown]
  - Pulmonary renal syndrome [Not Recovered/Not Resolved]
  - Anaemia [Unknown]
  - Productive cough [Unknown]
  - Thrombocytosis [Unknown]
  - Cough [Unknown]
  - Optic neuritis [Unknown]
  - Musculoskeletal pain [Unknown]

NARRATIVE: CASE EVENT DATE: 20180310
